FAERS Safety Report 8600750-7 (Version None)
Quarter: 2012Q3

REPORT INFORMATION
  Report Type: 
  Country: None (occurrence: None)
  Receive Date: 20120817
  Receipt Date: 20120807
  Transmission Date: 20120928
  Serious: Yes (Hospitalization)
  Sender: FDA-Public Use
  Company Number: US-BAYER-2012-034707

PATIENT
  Age: 33 Year
  Sex: Female
  Weight: 49.887 kg

DRUGS (1)
  1. YASMIN [Suspect]
     Dosage: UNK
     Dates: start: 20000101, end: 20090101

REACTIONS (4)
  - CEREBRAL ARTERY OCCLUSION [None]
  - HEMIPARESIS [None]
  - DEPRESSION [None]
  - CEREBROVASCULAR ACCIDENT [None]
